FAERS Safety Report 24572861 (Version 1)
Quarter: 2024Q4

REPORT INFORMATION
  Report Type: Spontaneous
  Country: DE (occurrence: DE)
  Receive Date: 20241101
  Receipt Date: 20241101
  Transmission Date: 20250115
  Serious: Yes (Hospitalization, Other)
  Sender: DR REDDYS
  Company Number: None

PATIENT
  Sex: Male

DRUGS (4)
  1. MORPHINE [Suspect]
     Active Substance: MORPHINE
     Indication: Product used for unknown indication
  2. LEVOMETHADONE HYDROCHLORIDE [Suspect]
     Active Substance: LEVOMETHADONE HYDROCHLORIDE
     Indication: Product used for unknown indication
  3. BENZOYLECGONINE [Suspect]
     Active Substance: BENZOYLECGONINE
     Indication: Product used for unknown indication
  4. CANNABIDIOL\HERBALS\TETRAHYDROCANNABINOL UNSPECIFIED [Suspect]
     Active Substance: CANNABIDIOL\HERBALS\TETRAHYDROCANNABINOL UNSPECIFIED
     Indication: Product used for unknown indication

REACTIONS (6)
  - Cardiopulmonary failure [Unknown]
  - Cardiac arrest [Unknown]
  - Loss of consciousness [Unknown]
  - Disturbance in attention [Unknown]
  - Toxicity to various agents [Unknown]
  - Multiple organ dysfunction syndrome [Unknown]

NARRATIVE: CASE EVENT DATE: 20190101
